FAERS Safety Report 24608466 (Version 3)
Quarter: 2024Q4

REPORT INFORMATION
  Report Type: Report from Study
  Country: CA (occurrence: CA)
  Receive Date: 20241112
  Receipt Date: 20241211
  Transmission Date: 20250115
  Serious: Yes (Other)
  Sender: NOVARTIS
  Company Number: CA-002147023-NVSC2024CA217303

PATIENT
  Age: 52 Year
  Sex: Male

DRUGS (1)
  1. KESIMPTA [Suspect]
     Active Substance: OFATUMUMAB
     Indication: Relapsing-remitting multiple sclerosis
     Dosage: 20 MG, QMO
     Route: 058
     Dates: start: 20241031

REACTIONS (10)
  - Haematochezia [Unknown]
  - Peripheral coldness [Unknown]
  - Gait disturbance [Unknown]
  - Limb discomfort [Unknown]
  - Burning sensation [Unknown]
  - Muscle spasms [Unknown]
  - Nail discolouration [Unknown]
  - Anal incontinence [Unknown]
  - Frustration tolerance decreased [Unknown]
  - Drug ineffective [Unknown]
